FAERS Safety Report 11215819 (Version 3)
Quarter: 2015Q3

REPORT INFORMATION
  Report Type: Spontaneous
  Country: JP (occurrence: JP)
  Receive Date: 20150624
  Receipt Date: 20150730
  Transmission Date: 20151125
  Serious: Yes (Hospitalization, Other)
  Sender: FDA-Public Use
  Company Number: JP-ASTELLAS-2015JP013077

PATIENT
  Age: 38 Year
  Sex: Male

DRUGS (9)
  1. CICLOSPORIN [Concomitant]
     Active Substance: CYCLOSPORINE
     Indication: DERMATITIS ATOPIC
     Dosage: UNK UNK, UNKNOWN FREQ.
     Route: 048
  2. XYZAL [Concomitant]
     Active Substance: LEVOCETIRIZINE DIHYDROCHLORIDE
     Indication: ECZEMA
  3. ROZEREM [Concomitant]
     Active Substance: RAMELTEON
     Indication: INSOMNIA
     Dosage: UNK UNK, AT BEDTIME
     Route: 048
     Dates: start: 20101227, end: 20111030
  4. RULID [Concomitant]
     Active Substance: ROXITHROMYCIN
     Indication: FOLLICULITIS
     Dosage: UNK UNK, TWICE DAILY
     Route: 048
     Dates: start: 20100301, end: 20100425
  5. PROTOPIC [Suspect]
     Active Substance: TACROLIMUS
     Indication: DERMATITIS ATOPIC
     Route: 061
     Dates: start: 200212, end: 20131111
  6. XYZAL [Concomitant]
     Active Substance: LEVOCETIRIZINE DIHYDROCHLORIDE
     Indication: PRURITUS
     Route: 048
     Dates: start: 20121112
  7. KERATINAMIN KOWA                   /00481901/ [Concomitant]
     Indication: PALMOPLANTAR KERATODERMA
     Dosage: UNK UNK, TWICE DAILY
     Route: 061
     Dates: start: 20130121, end: 20130224
  8. VALTREX [Concomitant]
     Active Substance: VALACYCLOVIR HYDROCHLORIDE
     Indication: KAPOSI^S VARICELLIFORM ERUPTION
     Dosage: UNK UNK, TWICE DAILY
     Route: 048
     Dates: start: 20100927, end: 20100930
  9. ANTEBATE [Concomitant]
     Active Substance: BETAMETHASONE DIPROPIONATE
     Indication: DERMATITIS ATOPIC
     Dosage: UNK UNK, UNKNOWN FREQ.
     Route: 061
     Dates: start: 20130513

REACTIONS (1)
  - Anaplastic large-cell lymphoma [Recovering/Resolving]

NARRATIVE: CASE EVENT DATE: 20131216
